FAERS Safety Report 6096094-0 (Version None)
Quarter: 2009Q1

REPORT INFORMATION
  Report Type: 
  Country: None (occurrence: None)
  Receive Date: 20090227
  Receipt Date: 20080902
  Transmission Date: 20090719
  Serious: No
  Sender: FDA-Public Use
  Company Number: A0745414A

PATIENT
  Age: 39 Year
  Sex: Female

DRUGS (7)
  1. LAMICTAL [Suspect]
     Indication: BIPOLAR DISORDER
     Dosage: 200MG PER DAY
     Route: 048
     Dates: start: 20080810
  2. CLONAZEPAM [Concomitant]
  3. TRAZODONE HCL [Concomitant]
  4. NAPROXEN [Concomitant]
  5. ACTIFED COMPOUND [Concomitant]
  6. LEXAPRO [Concomitant]
  7. MULTI-VITAMIN [Concomitant]

REACTIONS (4)
  - CRYING [None]
  - DRUG INEFFECTIVE [None]
  - MALAISE [None]
  - PALLOR [None]
